FAERS Safety Report 9168517 (Version 2)
Quarter: 2013Q2

REPORT INFORMATION
  Report Type: Spontaneous
  Country: US (occurrence: US)
  Receive Date: 20130318
  Receipt Date: 20130422
  Transmission Date: 20140414
  Serious: Yes (Other)
  Sender: FDA-Public Use
  Company Number: US-PFIZER INC-2013088335

PATIENT
  Age: 42 Year
  Sex: Female
  Weight: 54.42 kg

DRUGS (3)
  1. RELPAX [Suspect]
     Indication: MIGRAINE
     Dosage: UNK
     Dates: start: 20120501
  2. RELPAX [Suspect]
     Dosage: 40 MG, AS NEEDED
  3. TOPAMAX [Concomitant]
     Dosage: 200 MG, 1X/DAY

REACTIONS (2)
  - Drug ineffective [Unknown]
  - Malaise [Unknown]
